FAERS Safety Report 17722966 (Version 3)
Quarter: 2024Q3

REPORT INFORMATION
  Report Type: Spontaneous
  Country: SE (occurrence: SE)
  Receive Date: 20200429
  Receipt Date: 20240923
  Transmission Date: 20241017
  Serious: Yes (Death, Hospitalization)
  Sender: ACCORD
  Company Number: None

PATIENT
  Age: 69 Year
  Sex: Male

DRUGS (9)
  1. MYCOPHENOLATE MOFETIL [Suspect]
     Active Substance: MYCOPHENOLATE MOFETIL
     Indication: Microscopic polyangiitis
     Dosage: 1 G, QD
     Route: 065
  2. CYCLOPHOSPHAMIDE [Suspect]
     Active Substance: CYCLOPHOSPHAMIDE
     Indication: Microscopic polyangiitis
     Route: 042
     Dates: start: 2013
  3. METHYLPREDNISOLONE [Suspect]
     Active Substance: METHYLPREDNISOLONE
     Indication: Microscopic polyangiitis
     Dosage: 250 MG, TID
     Route: 065
     Dates: start: 2013
  4. PREDNISONE [Suspect]
     Active Substance: PREDNISONE
     Indication: Microscopic polyangiitis
     Dosage: 10 MG, QD
     Route: 065
     Dates: start: 2013
  5. RITUXIMAB [Suspect]
     Active Substance: RITUXIMAB
     Indication: Microscopic polyangiitis
     Dosage: 1400 MG
     Route: 065
  6. AZATHIOPRINE [Concomitant]
     Active Substance: AZATHIOPRINE
     Indication: Microscopic polyangiitis
     Route: 065
     Dates: start: 2013
  7. PREDNISONE [Suspect]
     Active Substance: PREDNISONE
     Indication: Microscopic polyangiitis
     Dosage: 60 MG, QD
     Route: 065
  8. RITUXIMAB [Suspect]
     Active Substance: RITUXIMAB
     Indication: Microscopic polyangiitis
     Route: 065
  9. PREDNISONE [Suspect]
     Active Substance: PREDNISONE
     Indication: Microscopic polyangiitis
     Dosage: 60 MG, QD
     Route: 065

REACTIONS (15)
  - Microscopic polyangiitis [Unknown]
  - C-reactive protein increased [Fatal]
  - Blood creatinine increased [Unknown]
  - Hepatic failure [Fatal]
  - Pyrexia [Fatal]
  - Oropharyngeal pain [Fatal]
  - Rebound effect [Unknown]
  - Coagulopathy [Fatal]
  - Off label use [Unknown]
  - Burning sensation [Fatal]
  - Adenoviral hepatitis [Fatal]
  - Antineutrophil cytoplasmic antibody positive [Unknown]
  - Haemophagocytic lymphohistiocytosis [Fatal]
  - Viral sepsis [Fatal]
  - Human herpesvirus 6 infection [Fatal]
